FAERS Safety Report 8601295-0 (Version None)
Quarter: 2012Q3

REPORT INFORMATION
  Report Type: 
  Country: None (occurrence: None)
  Receive Date: 20120817
  Receipt Date: 20120808
  Transmission Date: 20120928
  Serious: Yes (Other)
  Sender: FDA-Public Use
  Company Number: US-JNJFOC-20120805716

PATIENT
  Age: 71 Year
  Sex: Male

DRUGS (2)
  1. REMICADE [Suspect]
     Indication: COLITIS ULCERATIVE
     Dosage: HAD AN INFUSION 2 WEEKS PRIOR REPORTING
     Route: 042
     Dates: start: 20120101
  2. RESPIRATORY MEDICATION [Concomitant]
     Route: 065

REACTIONS (2)
  - DYSPNOEA [None]
  - HICCUPS [None]
